FAERS Safety Report 5237687-X (Version None)
Quarter: 2007Q1

REPORT INFORMATION
  Report Type: 
  Country: None (occurrence: None)
  Receive Date: 20070214
  Receipt Date: 20070208
  Transmission Date: 20070707
  Serious: Yes (Death)
  Sender: FDA-Public Use
  Company Number: CH-ROCHE-481928

PATIENT
  Age: 65 Year
  Sex: Male

DRUGS (3)
  1. CAPECITABINE [Suspect]
     Route: 065
     Dates: start: 20061026, end: 20070116
  2. OXALIPLATIN [Suspect]
     Route: 065
     Dates: start: 20061026, end: 20070103
  3. NEXIUM [Concomitant]
     Dates: start: 20061026, end: 20070123

REACTIONS (1)
  - CLOSTRIDIAL INFECTION [None]
